FAERS Safety Report 6089131-0 (Version None)
Quarter: 2009Q1

REPORT INFORMATION
  Report Type: 
  Country: None (occurrence: None)
  Receive Date: 20090224
  Receipt Date: 20090213
  Transmission Date: 20090719
  Serious: Yes (Death, Other)
  Sender: FDA-Public Use
  Company Number: US-AMGEN-US334277

PATIENT
  Age: 45 Year
  Sex: Male

DRUGS (5)
  1. EPOGEN [Suspect]
     Indication: RENAL FAILURE CHRONIC
     Route: 058
  2. MINOXIDIL [Concomitant]
  3. FUROSEMIDE [Concomitant]
  4. METOPROLOL [Concomitant]
  5. FOSINOPRIL [Concomitant]

REACTIONS (6)
  - ACCELERATED HYPERTENSION [None]
  - AGITATION [None]
  - HYPOGLYCAEMIA [None]
  - INSOMNIA [None]
  - PORPHYRIA [None]
  - RESTLESSNESS [None]
